FAERS Safety Report 20902979 (Version 2)
Quarter: 2022Q2

REPORT INFORMATION
  Report Type: Spontaneous
  Country: JP (occurrence: JP)
  Receive Date: 20220601
  Receipt Date: 20220606
  Transmission Date: 20220721
  Serious: Yes (Death, Hospitalization, Other)
  Sender: FDA-Public Use
  Company Number: JP-PFIZER INC-202200773054

PATIENT
  Age: 63 Year

DRUGS (2)
  1. OXALIPLATIN [Suspect]
     Active Substance: OXALIPLATIN
     Indication: Chemotherapy
     Dosage: 190 MG, CYCLIC
     Route: 041
     Dates: start: 20220301, end: 20220509
  2. CAPECITABINE [Suspect]
     Active Substance: CAPECITABINE
     Indication: Chemotherapy
     Dosage: 2000 MG, CYCLIC
     Route: 048
     Dates: start: 20220301

REACTIONS (9)
  - Disseminated intravascular coagulation [Fatal]
  - Physical deconditioning [Fatal]
  - Acute kidney injury [Fatal]
  - Neutrophil count decreased [Fatal]
  - Diarrhoea [Fatal]
  - Acute respiratory distress syndrome [Fatal]
  - Pneumonia [Fatal]
  - Pulmonary alveolar haemorrhage [Fatal]
  - Intestinal obstruction [Fatal]
